FAERS Safety Report 13175622 (Version 1)
Quarter: 2017Q1

REPORT INFORMATION
  Report Type: Spontaneous
  Country: US (occurrence: US)
  Receive Date: 20170131
  Receipt Date: 20170131
  Transmission Date: 20170428
  Serious: Yes (Life-Threatening, Disabling)
  Sender: FDA-Public Use
  Company Number: None

PATIENT
  Age: 70 Year
  Sex: Male
  Weight: 80.1 kg

DRUGS (30)
  1. PRADAXA/DABIGATRAN ETEXILATE MESYLATE [Concomitant]
  2. COQ10 [Concomitant]
     Active Substance: UBIDECARENONE
  3. KOREAN GINSENG [Concomitant]
  4. DHEA [Concomitant]
     Active Substance: PRASTERONE
  5. MULTIVITAMINS [Concomitant]
     Active Substance: VITAMINS
  6. GARLIC. [Concomitant]
     Active Substance: GARLIC
  7. ASPIRIN/ACETYLSALICYLIC ACID [Concomitant]
  8. LOPRESSOR/METOPROLOL TARTRATE [Concomitant]
  9. ?-LIPOIC ACID [Concomitant]
  10. NORWEGIAN SALMON OIL PHOSPHATIDYLSERINE [Concomitant]
  11. SELENIUM [Concomitant]
     Active Substance: SELENIUM
  12. ACETYL-L-CARNITINE HCL [Concomitant]
  13. FLOWER POLLEN EXTRACT [Concomitant]
  14. MG CITRATE-TRIPLE [Concomitant]
  15. AMLODIPINE BESYLATE. [Suspect]
     Active Substance: AMLODIPINE BESYLATE
     Indication: BLOOD PRESSURE MEASUREMENT
     Dosage: ?          QUANTITY:1 TABLET(S);?
     Route: 048
     Dates: start: 20170124, end: 20170124
  16. ECHINACEA [Concomitant]
     Active Substance: ECHINACEA, UNSPECIFIED
  17. POTASSIUM CITRATE. [Concomitant]
     Active Substance: POTASSIUM CITRATE
  18. SAW PALMETTO [Concomitant]
     Active Substance: SAW PALMETTO
  19. SERRAPEPTASE [Concomitant]
     Active Substance: SERRAPEPTASE
  20. D-RIBOSE [Concomitant]
     Active Substance: DIETARY SUPPLEMENT
  21. OMEGA 3-6-9 [Concomitant]
     Active Substance: FISH OIL
  22. PHYTOSTEROL COMPLEX/W BETA-PL [Concomitant]
  23. GINKGO BILOBA [Concomitant]
     Active Substance: GINKGO
  24. NATTOKINASE [Concomitant]
     Active Substance: NATTOKINASE
  25. ASPIRIN. [Concomitant]
     Active Substance: ASPIRIN
  26. CORYDALIS [Concomitant]
  27. GLUCOSAMINE SULPHATE [Concomitant]
     Active Substance: GLUCOSAMINE
  28. HAWTHORN EXTRACT [Concomitant]
  29. PUMPKIN SEED OIL [Concomitant]
  30. PYGEUM [Concomitant]
     Active Substance: PYGEUM

REACTIONS (6)
  - Palpitations [None]
  - Asthenia [None]
  - Blood pressure increased [None]
  - Arrhythmia [None]
  - Heart rate increased [None]
  - Heart rate decreased [None]

NARRATIVE: CASE EVENT DATE: 20170124
